FAERS Safety Report 5801470-4 (Version None)
Quarter: 2008Q3

REPORT INFORMATION
  Report Type: 
  Country: None (occurrence: None)
  Receive Date: 20080707
  Receipt Date: 20080624
  Transmission Date: 20090109
  Serious: Yes (Death)
  Sender: FDA-Public Use
  Company Number: GB-TEVA-173610ISR

PATIENT
  Age: 20 Year
  Sex: Male

DRUGS (3)
  1. DIAZEPAM [Suspect]
     Indication: ANXIETY
  2. FENTANYL [Suspect]
     Route: 062
  3. TRAMADOL HCL [Suspect]
     Indication: PAIN

REACTIONS (1)
  - PNEUMONIA [None]
